FAERS Safety Report 13000018 (Version 2)
Quarter: 2016Q4

REPORT INFORMATION
  Report Type: Report from Study
  Country: DE (occurrence: DE)
  Receive Date: 20161205
  Receipt Date: 20161208
  Transmission Date: 20170207
  Serious: Yes (Death, Hospitalization)
  Sender: FDA-Public Use
  Company Number: PHHY2016DE166143

PATIENT
  Sex: Female

DRUGS (1)
  1. AFINITOR [Suspect]
     Active Substance: EVEROLIMUS
     Indication: METASTATIC RENAL CELL CARCINOMA
     Dosage: 10 MG, QD
     Route: 065
     Dates: start: 20131007, end: 20140108

REACTIONS (5)
  - Karnofsky scale worsened [Unknown]
  - Malignant neoplasm progression [Unknown]
  - Bronchitis [Unknown]
  - Stomatitis [Unknown]
  - Death [Fatal]

NARRATIVE: CASE EVENT DATE: 20140203
